FAERS Safety Report 9423375 (Version 1)
Quarter: 2013Q3

REPORT INFORMATION
  Report Type: Report from Study
  Country: IT (occurrence: IT)
  Receive Date: 20130726
  Receipt Date: 20130726
  Transmission Date: 20140515
  Serious: Yes (Hospitalization)
  Sender: FDA-Public Use
  Company Number: IT-ABBOTT-13P-083-1122288-00

PATIENT
  Age: 37 Year
  Sex: Female

DRUGS (4)
  1. RITONAVIR [Suspect]
     Indication: HIV INFECTION
     Route: 048
     Dates: start: 20110921, end: 20130628
  2. TRUVADA [Concomitant]
     Indication: HIV INFECTION
     Dosage: 200/265MG
     Route: 048
     Dates: start: 20110404, end: 20130628
  3. REYATAZ [Concomitant]
     Indication: HIV INFECTION
     Route: 048
     Dates: start: 20110921, end: 20130628
  4. COLECALCIFEROL [Concomitant]
     Indication: PRODUCT USED FOR UNKNOWN INDICATION
     Dates: start: 20120704

REACTIONS (1)
  - Renal colic [Not Recovered/Not Resolved]
